FAERS Safety Report 8819774 (Version 1)
Quarter: 2012Q4

REPORT INFORMATION
  Report Type: 
  Country: US (occurrence: US)
  Receive Date: 20121001
  Receipt Date: 20121001
  Transmission Date: 20130627
  Serious: Yes (Death, Other)
  Sender: FDA-Public Use
  Company Number: US-ROCHE-1125661

PATIENT
  Sex: Female

DRUGS (5)
  1. HERCEPTIN [Suspect]
     Indication: BREAST CANCER
     Route: 065
     Dates: start: 20001115
  2. HERCEPTIN [Suspect]
     Route: 065
     Dates: start: 20001122
  3. ADRIA [Concomitant]
  4. CYTOXAN [Concomitant]
  5. TAXOL [Concomitant]

REACTIONS (2)
  - Death [Fatal]
  - Metastases to bone [Unknown]
